FAERS Safety Report 8522128-7 (Version None)
Quarter: 2012Q3

REPORT INFORMATION
  Report Type: 
  Country: None (occurrence: None)
  Receive Date: 20120719
  Receipt Date: 20120711
  Transmission Date: 20120928
  Serious: Yes (Other)
  Sender: FDA-Public Use
  Company Number: US-009507513-1207USA005023

PATIENT

DRUGS (1)
  1. DEXAMETHASONE [Suspect]
     Indication: TENOSYNOVITIS STENOSANS
     Dosage: 4 MG, ONCE

REACTIONS (1)
  - TENDON RUPTURE [None]
